FAERS Safety Report 9821928 (Version 2)
Quarter: 2014Q1

REPORT INFORMATION
  Report Type: Report from Study
  Country: BR (occurrence: BR)
  Receive Date: 20140116
  Receipt Date: 20140217
  Transmission Date: 20141002
  Serious: Yes (Hospitalization)
  Sender: FDA-Public Use
  Company Number: PHHY2014BR004094

PATIENT
  Age: 59 Year
  Sex: Female

DRUGS (5)
  1. XOLAIR [Suspect]
     Indication: BRONCHITIS
     Dosage: 4 AMPOULES, MONTHLY
     Route: 058
     Dates: start: 200907
  2. XOLAIR [Suspect]
     Indication: ASTHMA
     Dosage: UNK
     Dates: start: 20121123
  3. FORASEQ [Concomitant]
     Indication: ASTHMA
     Dosage: 2 DF, DAILY
     Route: 055
  4. FORASEQ [Concomitant]
     Indication: BRONCHITIS
  5. POLARAMINE [Concomitant]
     Indication: HYPERSENSITIVITY
     Dosage: 1 DF, DAILY
     Route: 048

REACTIONS (1)
  - Emotional disorder [Recovered/Resolved]
